FAERS Safety Report 8538723-5 (Version None)
Quarter: 2012Q3

REPORT INFORMATION
  Report Type: 
  Country: None (occurrence: None)
  Receive Date: 20120726
  Receipt Date: 20120716
  Transmission Date: 20120928
  Serious: Yes (Hospitalization)
  Sender: FDA-Public Use
  Company Number: US-BAYER-2012-073031

PATIENT
  Age: 20 Year
  Sex: Female
  Weight: 77.098 kg

DRUGS (5)
  1. YASMIN [Suspect]
  2. DROSPIRENONE AND ETHINYL ESTRADIOL [Suspect]
  3. YAZ [Suspect]
  4. IBUPROFEN [Concomitant]
     Indication: FLANK PAIN
     Dosage: 800 MG, TID
     Route: 048
     Dates: start: 20111007
  5. CETIRIZINE HCL [Concomitant]
     Dosage: 10MG UNK
     Route: 048
     Dates: start: 20110802

REACTIONS (1)
  - PULMONARY EMBOLISM [None]
